FAERS Safety Report 8035486-7 (Version None)
Quarter: 2012Q1

REPORT INFORMATION
  Report Type: 
  Country: None (occurrence: None)
  Receive Date: 20120110
  Receipt Date: 20120110
  Transmission Date: 20120608
  Serious: No
  Sender: FDA-Public Use
  Company Number: None

PATIENT
  Age: 43 Year
  Sex: Male
  Weight: 111.4 kg

DRUGS (1)
  1. IOHEXOL [Suspect]
     Indication: COMPUTERISED TOMOGRAM
     Dosage: 302 MG ONCE IV
     Route: 042
     Dates: start: 20110627, end: 20110627

REACTIONS (3)
  - ERYTHEMA MULTIFORME [None]
  - URTICARIA [None]
  - INJECTION SITE PAIN [None]
